FAERS Safety Report 24160560 (Version 1)
Quarter: 2024Q3

REPORT INFORMATION
  Report Type: Spontaneous
  Country: US (occurrence: US)
  Receive Date: 20240801
  Receipt Date: 20240801
  Transmission Date: 20241017
  Serious: No
  Sender: ROCHE
  Company Number: US-ROCHE-10000034401

PATIENT

DRUGS (1)
  1. KADCYLA [Suspect]
     Active Substance: ADO-TRASTUZUMAB EMTANSINE
     Indication: Product used for unknown indication
     Route: 065

REACTIONS (8)
  - Alopecia [Unknown]
  - Weight decreased [Unknown]
  - Feeding disorder [Unknown]
  - Taste disorder [Unknown]
  - Stomatitis [Unknown]
  - Diarrhoea [Unknown]
  - Skin ulcer [Unknown]
  - Onycholysis [Unknown]
